FAERS Safety Report 4599983-9 (Version None)
Quarter: 2005Q1

REPORT INFORMATION
  Report Type: 
  Country: None (occurrence: None)
  Receive Date: 20050307
  Receipt Date: 20050224
  Transmission Date: 20050727
  Serious: Yes (Other)
  Sender: FDA-Public Use
  Company Number: US-GLAXOSMITHKLINE-A0547088A

PATIENT
  Sex: Female

DRUGS (1)
  1. TUMS E-X TABLETS [Suspect]
     Indication: DYSPEPSIA
     Route: 048
     Dates: start: 19950101

REACTIONS (5)
  - CONDITION AGGRAVATED [None]
  - DIABETES MELLITUS [None]
  - HYPERSENSITIVITY [None]
  - INFLUENZA [None]
  - VISION BLURRED [None]
